FAERS Safety Report 21679876 (Version 4)
Quarter: 2023Q1

REPORT INFORMATION
  Report Type: Spontaneous
  Country: TW (occurrence: TW)
  Receive Date: 20221205
  Receipt Date: 20230206
  Transmission Date: 20230418
  Serious: Yes (Hospitalization, Other)
  Sender: FDA-Public Use
  Company Number: TW-BRISTOL-MYERS SQUIBB COMPANY-2022-132821

PATIENT
  Age: 60 Year
  Sex: Male
  Weight: 64.5 kg

DRUGS (2)
  1. OPDIVO [Suspect]
     Active Substance: NIVOLUMAB
     Indication: Hepatocellular carcinoma
     Dosage: ROUTE OF ADMIN IS IVF
     Route: 042
     Dates: start: 20221025
  2. IPILIMUMAB [Suspect]
     Active Substance: IPILIMUMAB
     Indication: Hepatocellular carcinoma
     Dosage: ROUTE OF ADMIN- IVF
     Route: 042
     Dates: start: 20221025

REACTIONS (7)
  - Immune-mediated hepatitis [Recovering/Resolving]
  - Off label use [Unknown]
  - Cholestasis [Unknown]
  - Hepatic failure [Unknown]
  - Hepatic encephalopathy [Unknown]
  - Bradycardia [Unknown]
  - Hypotension [Unknown]

NARRATIVE: CASE EVENT DATE: 20221101
